FAERS Safety Report 17133833 (Version 2)
Quarter: 2020Q1

REPORT INFORMATION
  Report Type: Spontaneous
  Country: US (occurrence: US)
  Receive Date: 20191210
  Receipt Date: 20200206
  Transmission Date: 20200409
  Serious: No
  Sender: FDA-Public Use
  Company Number: US-GLENMARK PHARMACEUTICALS-2019GMK042867

PATIENT

DRUGS (2)
  1. CLOBETASOL PROPIONATE FOAM, 0.05% [Suspect]
     Active Substance: CLOBETASOL PROPIONATE
     Indication: SCAB
     Dosage: UNK, OD
     Route: 061
     Dates: start: 201908, end: 201908
  2. CLOBETASOL PROPIONATE FOAM, 0.05% [Suspect]
     Active Substance: CLOBETASOL PROPIONATE
     Indication: PSORIASIS

REACTIONS (4)
  - Product dose omission [Unknown]
  - Product substitution issue [Unknown]
  - Application site pain [Not Recovered/Not Resolved]
  - Physical product label issue [Unknown]

NARRATIVE: CASE EVENT DATE: 201908
